FAERS Safety Report 13006663 (Version 3)
Quarter: 2017Q1

REPORT INFORMATION
  Report Type: Spontaneous
  Country: DE (occurrence: DE)
  Receive Date: 20161207
  Receipt Date: 20170123
  Transmission Date: 20170428
  Serious: Yes (Other)
  Sender: FDA-Public Use
  Company Number: DE-BAYER-2016-222394

PATIENT
  Sex: Male

DRUGS (1)
  1. ASPIRIN EFFECT [Suspect]
     Active Substance: ASPIRIN
     Dosage: 2 DF, ONCE
     Route: 048
     Dates: start: 20161113, end: 20161113

REACTIONS (4)
  - Abdominal pain upper [None]
  - Tongue discomfort [None]
  - Cranial nerve injury [None]
  - Product shape issue [None]

NARRATIVE: CASE EVENT DATE: 20161113
